FAERS Safety Report 11004650 (Version 2)
Quarter: 2015Q2

REPORT INFORMATION
  Report Type: Report from Study
  Country: DE (occurrence: US)
  Receive Date: 20150409
  Receipt Date: 20150428
  Transmission Date: 20150821
  Serious: Yes (Hospitalization)
  Sender: FDA-Public Use
  Company Number: US-009507513-1504USA001682

PATIENT
  Age: 54 Year
  Sex: Male
  Weight: 92.4 kg

DRUGS (3)
  1. ALLOPURINOL. [Concomitant]
     Active Substance: ALLOPURINOL
     Indication: HYPERURICAEMIA
     Dosage: TOTAL DAILY DOSE 300MG, ONCE
     Route: 048
     Dates: start: 20150216
  2. GEMCITABINE [Suspect]
     Active Substance: GEMCITABINE\GEMCITABINE HYDROCHLORIDE
     Indication: NON-SMALL CELL LUNG CANCER
     Dosage: 1250 MG/M2, DAY 1 AND 8
     Route: 042
     Dates: start: 20150326, end: 20150326
  3. CISPLATIN. [Suspect]
     Active Substance: CISPLATIN
     Indication: NON-SMALL CELL LUNG CANCER
     Dosage: 75 MG/M2, Q3W FOR CYCLES 4-6
     Route: 042
     Dates: start: 20150326, end: 20150326

REACTIONS (1)
  - Pneumonia [Recovered/Resolved]

NARRATIVE: CASE EVENT DATE: 20150402
